FAERS Safety Report 9563949 (Version 2)
Quarter: 2013Q4

REPORT INFORMATION
  Report Type: Spontaneous
  Country: US (occurrence: US)
  Receive Date: 20130928
  Receipt Date: 20131001
  Transmission Date: 20140711
  Serious: Yes (Other)
  Sender: FDA-Public Use
  Company Number: US-BAYER-2013-112831

PATIENT
  Age: 73 Year
  Sex: Female
  Weight: 70.75 kg

DRUGS (5)
  1. CIPRO [Suspect]
     Indication: URINARY TRACT INFECTION
     Dosage: 500 MG, BID
     Dates: start: 201112
  2. CIPRO [Suspect]
     Indication: URINARY TRACT INFECTION
     Dosage: UNK
  3. NEURONTIN [Concomitant]
     Indication: FIBROMYALGIA
     Dosage: 3200 MG, DAILY
     Dates: start: 200207, end: 2011
  4. METFORMIN [Concomitant]
     Indication: DIABETES MELLITUS
     Dosage: 500 MG, DAILY
  5. GLIMEPIRIDE [Concomitant]
     Indication: DIABETES MELLITUS
     Dosage: 2 MG, DAILY

REACTIONS (5)
  - Cardiac disorder [Unknown]
  - Hydronephrosis [None]
  - Weight increased [Unknown]
  - Drug ineffective [Unknown]
  - Blood urine present [Not Recovered/Not Resolved]
